FAERS Safety Report 7943869-6 (Version None)
Quarter: 2011Q4

REPORT INFORMATION
  Report Type: 
  Country: None (occurrence: None)
  Receive Date: 20111128
  Receipt Date: 20111118
  Transmission Date: 20120403
  Serious: Yes (Hospitalization, Other)
  Sender: FDA-Public Use
  Company Number: US-ASTRAZENECA-2009SE08739

PATIENT
  Age: 55 Year
  Sex: Female

DRUGS (4)
  1. ARIMIDEX [Suspect]
     Indication: BREAST CANCER
     Route: 048
  2. BETASERON [Suspect]
     Indication: RELAPSING-REMITTING MULTIPLE SCLEROSIS
     Dosage: POWDER AND SOLVENT FOR SOLUTION FOR INJECTION, 250 UG, 8 MIU EVERY OTHER DAY
     Route: 058
     Dates: start: 19990927, end: 20080201
  3. BETASERON [Suspect]
     Dosage: POWDER AND SOLVENT FOR SOLUTION FOR INJECTION, 250 UG, 8 MIU  EVERY OTHER DAY
     Route: 058
  4. BETASERON [Suspect]
     Dosage: POWDER AND SOLVENT FOR SOLUTION FOR INJECTION, 250 UG, 2 MIU  EVERY OTHER DAY
     Route: 058
     Dates: start: 20080805

REACTIONS (8)
  - PAIN [None]
  - BREAST CANCER FEMALE [None]
  - ARTHRALGIA [None]
  - CHILLS [None]
  - INJECTION SITE PAIN [None]
  - SINUSITIS [None]
  - PYREXIA [None]
  - INJECTION SITE RASH [None]
